FAERS Safety Report 9109386 (Version 1)
Quarter: 2013Q1

REPORT INFORMATION
  Report Type: Spontaneous
  Country: BR (occurrence: BR)
  Receive Date: 20130222
  Receipt Date: 20130222
  Transmission Date: 20140127
  Serious: Yes (Death, Hospitalization, Other)
  Sender: FDA-Public Use
  Company Number: PHHY2013BR016866

PATIENT
  Sex: Female
  Weight: 50 kg

DRUGS (3)
  1. FORASEQ [Suspect]
     Indication: CHRONIC OBSTRUCTIVE PULMONARY DISEASE
     Dosage: BID (12/400MCG)
     Dates: end: 201211
  2. FORASEQ [Suspect]
     Dosage: DAILY (12/200 MCG)
     Dates: start: 201211
  3. ACETYLCYSTEINE [Concomitant]
     Indication: LUNG DISORDER
     Dosage: 1 DF DAILY

REACTIONS (7)
  - Psoriasis [Fatal]
  - Skin disorder [Fatal]
  - Skin infection [Fatal]
  - Pyrexia [Fatal]
  - Bacterial infection [Fatal]
  - Weight decreased [Fatal]
  - Incorrect dose administered [Unknown]
